FAERS Safety Report 7201630-4 (Version None)
Quarter: 2010Q4

REPORT INFORMATION
  Report Type: 
  Country: None (occurrence: None)
  Receive Date: 20101229
  Receipt Date: 20101217
  Transmission Date: 20110411
  Serious: No
  Sender: FDA-Public Use
  Company Number: US-BAYER-201038253NA

PATIENT
  Sex: Female

DRUGS (3)
  1. YAZ [Suspect]
     Dosage: UNK
     Dates: start: 20060601, end: 20080701
  2. YASMIN [Suspect]
  3. OCELLA [Suspect]

REACTIONS (2)
  - GALLBLADDER DISORDER [None]
  - INJURY [None]
